FAERS Safety Report 9028391 (Version 4)
Quarter: 2013Q1

REPORT INFORMATION
  Report Type: Spontaneous
  Country: GB (occurrence: GB)
  Receive Date: 20130124
  Receipt Date: 20130319
  Transmission Date: 20140127
  Serious: Yes (Life-Threatening, Hospitalization)
  Sender: FDA-Public Use
  Company Number: GB-ASTELLAS-2013US000901

PATIENT
  Age: 44 Year
  Sex: Male
  Weight: 87 kg

DRUGS (1)
  1. RAPISCAN [Suspect]
     Indication: SCAN MYOCARDIAL PERFUSION
     Dosage: 5 MG, TOTAL DOSE
     Route: 042
     Dates: start: 20130104, end: 20130104

REACTIONS (4)
  - Muscle contractions involuntary [Unknown]
  - Sinus arrest [Recovered/Resolved]
  - Loss of consciousness [Recovered/Resolved]
  - Nodal rhythm [Recovered/Resolved]
